FAERS Safety Report 7786373-0 (Version None)
Quarter: 2011Q3

REPORT INFORMATION
  Report Type: 
  Country: None (occurrence: None)
  Receive Date: 20110929
  Receipt Date: 20110926
  Transmission Date: 20111222
  Serious: Yes (Other)
  Sender: FDA-Public Use
  Company Number: PHHY2011TR83622

PATIENT
  Age: 77 Year
  Sex: Female

DRUGS (1)
  1. ZOLEDRONOC ACID [Suspect]
     Indication: OSTEOPOROSIS
     Dosage: 5 MG / 100 ML, ONE DOSE PER YEAR
     Route: 042
     Dates: start: 20110513

REACTIONS (6)
  - PYREXIA [None]
  - SOMNOLENCE [None]
  - FATIGUE [None]
  - PARALYSIS [None]
  - APHASIA [None]
  - MALAISE [None]
